FAERS Safety Report 23667467 (Version 4)
Quarter: 2024Q3

REPORT INFORMATION
  Report Type: Spontaneous
  Country: US (occurrence: US)
  Receive Date: 20240325
  Receipt Date: 20240828
  Transmission Date: 20241017
  Serious: Yes (Other)
  Sender: BRISTOL MYERS SQUIBB
  Company Number: US-BRISTOL-MYERS SQUIBB COMPANY-2024-045357

PATIENT
  Age: 71 Year
  Sex: Male

DRUGS (3)
  1. LENALIDOMIDE [Suspect]
     Active Substance: LENALIDOMIDE
     Indication: Hypokalaemia
     Dosage: TAKE 1 CAPSULE BY MOUTH EVERYDAY ON DAYS 1-21 WITH 7 DAYS OFF
     Route: 048
  2. LENALIDOMIDE [Suspect]
     Active Substance: LENALIDOMIDE
     Indication: Neoplasm
     Dosage: FREQUENCY: TAKE 1 CAPSULE BY MOUTH EVERY DAY ON DAYS 1-14 FOLLOWED BY 1 WEEK OFF OF A 21 DAY CYCLE
     Route: 048
  3. LENALIDOMIDE [Suspect]
     Active Substance: LENALIDOMIDE
     Dosage: EVERY DAY FOR 3 WEEKS ON AND 1 WEEK OFF FOR A 28 DAYS
     Route: 048

REACTIONS (3)
  - Eye infection [Not Recovered/Not Resolved]
  - Illness [Recovered/Resolved]
  - Product dose omission issue [Unknown]
